FAERS Safety Report 7312522-4 (Version None)
Quarter: 2011Q1

REPORT INFORMATION
  Report Type: 
  Country: None (occurrence: None)
  Receive Date: 20110119
  Receipt Date: 20100812
  Transmission Date: 20110831
  Serious: Yes (Hospitalization)
  Sender: FDA-Public Use
  Company Number: A-US2010-34682

PATIENT
  Age: 55 Year
  Sex: Female
  Weight: 153.1 kg

DRUGS (19)
  1. AMARYL [Concomitant]
  2. COLECALCIFEROL (COLECALCIFEROL) [Concomitant]
  3. KEFLEX [Concomitant]
  4. LANTUS [Concomitant]
  5. ALDACTONE [Concomitant]
  6. TORSEMIDE [Concomitant]
  7. PROVENTIL [Concomitant]
  8. OXYGEN (OXYGEN) [Concomitant]
  9. REVATIO [Concomitant]
  10. CRESTOR [Concomitant]
  11. LEVOTHYROXINE SODIUM [Concomitant]
  12. LASIX [Concomitant]
  13. NOVOLOG [Concomitant]
  14. INSULIN LISPRO (INSULIN LISPRO) [Concomitant]
  15. OCEAN NASAL (SODIUM CHLORIDE) [Concomitant]
  16. TRACLEER [Suspect]
     Indication: PULMONARY ARTERIAL HYPERTENSION
     Dosage: 62.5 MG, BID, ORAL, ORAL
     Route: 048
     Dates: start: 20100701
  17. TRACLEER [Suspect]
     Indication: PULMONARY ARTERIAL HYPERTENSION
     Dosage: 62.5 MG, BID, ORAL, ORAL
     Route: 048
     Dates: start: 20091201, end: 20100101
  18. LUMIGAN [Concomitant]
  19. THEOPHYLLINE [Concomitant]

REACTIONS (8)
  - DYSPNOEA [None]
  - EPISTAXIS [None]
  - BLOOD CREATININE INCREASED [None]
  - HYPONATRAEMIA [None]
  - OEDEMA PERIPHERAL [None]
  - LIVER FUNCTION TEST ABNORMAL [None]
  - FLUID RETENTION [None]
  - CONDITION AGGRAVATED [None]
